FAERS Safety Report 15689793 (Version 1)
Quarter: 2018Q4

REPORT INFORMATION
  Report Type: Spontaneous
  Country: US (occurrence: US)
  Receive Date: 20181126
  Receipt Date: 20181126
  Transmission Date: 20190205
  Serious: No
  Sender: FDA-Public Use
  Company Number: None

PATIENT
  Age: 20 Year
  Sex: Female

DRUGS (1)
  1. HUMIRA [Suspect]
     Active Substance: ADALIMUMAB
     Indication: ILL-DEFINED DISORDER
     Dosage: ?          OTHER DOSE:1 PEN;OTHER FREQUENCY:EVERY 2 WEEKS;?
     Route: 058
     Dates: start: 20180822

REACTIONS (5)
  - Fatigue [None]
  - Nausea [None]
  - Mood altered [None]
  - Affect lability [None]
  - Decreased appetite [None]

NARRATIVE: CASE EVENT DATE: 20181101
